FAERS Safety Report 13892167 (Version 2)
Quarter: 2017Q3

REPORT INFORMATION
  Report Type: Spontaneous
  Country: DE (occurrence: DE)
  Receive Date: 20170822
  Receipt Date: 20170908
  Transmission Date: 20171127
  Serious: Yes (Other)
  Sender: FDA-Public Use
  Company Number: DE-JNJFOC-20170819035

PATIENT
  Sex: Male

DRUGS (3)
  1. DOCOSAHEXANOIC ACID W/EICOSAPENTAENOIC ACID [Concomitant]
     Route: 065
  2. RAMIPRIL. [Concomitant]
     Active Substance: RAMIPRIL
     Route: 065
  3. XARELTO [Suspect]
     Active Substance: RIVAROXABAN
     Indication: ATRIAL FIBRILLATION
     Route: 048
     Dates: start: 201607

REACTIONS (4)
  - Muscle rupture [Unknown]
  - Muscle haemorrhage [Unknown]
  - Myalgia [Unknown]
  - Subcutaneous haematoma [Unknown]
